FAERS Safety Report 9705910 (Version 2)
Quarter: 2013Q4

REPORT INFORMATION
  Report Type: Spontaneous
  Country: US (occurrence: US)
  Receive Date: 20131122
  Receipt Date: 20131122
  Transmission Date: 20140711
  Serious: No
  Sender: FDA-Public Use
  Company Number: US-GALDERMA-US-GDP-11410332

PATIENT
  Age: 20 Year
  Sex: Female

DRUGS (3)
  1. CLOBEX [Suspect]
     Indication: RASH
     Route: 061
     Dates: start: 20110319, end: 20110320
  2. SINGULAIR [Concomitant]
     Indication: ASTHMA
     Route: 048
  3. ADVAIR [Concomitant]
     Indication: ASTHMA
     Route: 055

REACTIONS (6)
  - Swelling face [Recovered/Resolved]
  - Lip swelling [Recovered/Resolved]
  - Oedema mouth [Recovered/Resolved]
  - Dysphagia [Recovered/Resolved]
  - Dyspnoea [Recovered/Resolved]
  - Off label use [Recovered/Resolved]
